FAERS Safety Report 7780654-2 (Version None)
Quarter: 2011Q3

REPORT INFORMATION
  Report Type: 
  Country: None (occurrence: None)
  Receive Date: 20110927
  Receipt Date: 20110215
  Transmission Date: 20111222
  Serious: Yes (Other)
  Sender: FDA-Public Use
  Company Number: US-BRISTOL-MYERS SQUIBB COMPANY-15559255

PATIENT
  Age: 71 Year
  Sex: Female

DRUGS (7)
  1. SYNTHROID [Concomitant]
  2. ATENOLOL [Concomitant]
  3. NORVASC [Concomitant]
  4. ALBUTEROL SULFATE [Suspect]
     Indication: SINUSITIS
     Dosage: 1DF=1 PUFF VENTOLIN HFA-CFC FREE INHALER
     Route: 055
     Dates: start: 20101222, end: 20101226
  5. AVAPRO [Suspect]
     Indication: HYPERTENSION
     Route: 048
     Dates: end: 20101229
  6. ALBUTEROL SULFATE [Suspect]
     Indication: BRONCHITIS
     Dosage: 1DF=1 PUFF VENTOLIN HFA-CFC FREE INHALER
     Route: 055
     Dates: start: 20101222, end: 20101226
  7. AZITHROMYCIN [Concomitant]

REACTIONS (3)
  - ATRIAL FIBRILLATION [None]
  - BRONCHITIS [None]
  - SINUSITIS [None]
